FAERS Safety Report 10071264 (Version 2)
Quarter: 2014Q2

REPORT INFORMATION
  Report Type: Spontaneous
  Country: US (occurrence: US)
  Receive Date: 20140410
  Receipt Date: 20140410
  Transmission Date: 20141212
  Serious: No
  Sender: FDA-Public Use
  Company Number: US-009507513-1203USA02731

PATIENT
  Sex: Female

DRUGS (3)
  1. SINGULAIR [Suspect]
     Indication: RHINITIS ALLERGIC
     Dosage: 10 MG, QD
     Route: 048
  2. PROMETRIUM [Concomitant]
  3. CETIRIZINE HYDROCHLORIDE [Concomitant]

REACTIONS (1)
  - Exposure during pregnancy [Unknown]
